FAERS Safety Report 19421655 (Version 2)
Quarter: 2021Q3

REPORT INFORMATION
  Report Type: Spontaneous
  Country: AR (occurrence: AR)
  Receive Date: 20210616
  Receipt Date: 20210704
  Transmission Date: 20211014
  Serious: Yes (Disabling)
  Sender: FDA-Public Use
  Company Number: AR-AMGEN-ARGSP2021045364

PATIENT
  Age: 68 Year
  Sex: Female

DRUGS (1)
  1. ENBREL [Suspect]
     Active Substance: ETANERCEPT
     Indication: RHEUMATOID ARTHRITIS
     Dosage: 50 MG, WEEKLY
     Route: 065
     Dates: start: 20171116

REACTIONS (13)
  - Condition aggravated [Not Recovered/Not Resolved]
  - Muscular weakness [Not Recovered/Not Resolved]
  - Dysstasia [Not Recovered/Not Resolved]
  - Inflammation [Unknown]
  - Malaise [Not Recovered/Not Resolved]
  - Impaired driving ability [Unknown]
  - Asthenia [Unknown]
  - Hypoaesthesia [Not Recovered/Not Resolved]
  - Joint swelling [Not Recovered/Not Resolved]
  - Drug ineffective [Unknown]
  - Mobility decreased [Not Recovered/Not Resolved]
  - Limb discomfort [Not Recovered/Not Resolved]
  - Weight decreased [Not Recovered/Not Resolved]

NARRATIVE: CASE EVENT DATE: 20210503
